FAERS Safety Report 19396904 (Version 1)
Quarter: 2021Q2

REPORT INFORMATION
  Report Type: Spontaneous
  Country: JP (occurrence: JP)
  Receive Date: 20210610
  Receipt Date: 20210610
  Transmission Date: 20210717
  Serious: Yes (Hospitalization, Other)
  Sender: FDA-Public Use
  Company Number: JP-SA-2021SA187795

PATIENT

DRUGS (1)
  1. DUPIXENT [Suspect]
     Active Substance: DUPILUMAB
     Indication: DERMATITIS ATOPIC
     Dosage: 300 MG/DAY
     Route: 058
     Dates: start: 201910, end: 202010

REACTIONS (3)
  - Intraocular pressure increased [Unknown]
  - Eye pruritus [Unknown]
  - Facial paralysis [Unknown]

NARRATIVE: CASE EVENT DATE: 201912
